FAERS Safety Report 25956812 (Version 1)
Quarter: 2025Q4

REPORT INFORMATION
  Report Type: Spontaneous
  Country: JP (occurrence: JP)
  Receive Date: 20251024
  Receipt Date: 20251024
  Transmission Date: 20260118
  Serious: Yes (Other)
  Sender: MERCK SHARP & DOHME LLC
  Company Number: JP-009507513-2342875

PATIENT
  Age: 90 Year

DRUGS (1)
  1. KEYTRUDA [Suspect]
     Active Substance: PEMBROLIZUMAB
     Indication: Malignant melanoma
     Route: 041
     Dates: end: 202502

REACTIONS (2)
  - Major depression [Unknown]
  - Arteritis [Recovered/Resolved]

NARRATIVE: CASE EVENT DATE: 20250101
